FAERS Safety Report 19395497 (Version 3)
Quarter: 2021Q3

REPORT INFORMATION
  Report Type: Report from Study
  Country: US (occurrence: US)
  Receive Date: 20210609
  Receipt Date: 20210810
  Transmission Date: 20211014
  Serious: Yes (Hospitalization, Other)
  Sender: FDA-Public Use
  Company Number: US-TAKEDA-2021TUS024370

PATIENT
  Sex: Female

DRUGS (1)
  1. VEDOLIZUMAB [Suspect]
     Active Substance: VEDOLIZUMAB
     Indication: COLITIS ULCERATIVE
     Dosage: 300 MILLIGRAM, Q4WEEKS
     Route: 042

REACTIONS (6)
  - Off label use [Unknown]
  - Gait disturbance [Unknown]
  - Toothache [Unknown]
  - Colitis ulcerative [Unknown]
  - Feeling abnormal [Unknown]
  - Product dose omission issue [Unknown]
